FAERS Safety Report 9504121 (Version 1)
Quarter: 2013Q3

REPORT INFORMATION
  Report Type: Spontaneous
  Country: US (occurrence: US)
  Receive Date: 20130906
  Receipt Date: 20130906
  Transmission Date: 20140515
  Serious: Yes (Hospitalization, Other)
  Sender: FDA-Public Use
  Company Number: US-UCBSA-096642

PATIENT
  Sex: 0

DRUGS (14)
  1. CIMZIA [Suspect]
     Dosage: DOSE: UNKNOWN
     Dates: end: 2011
  2. PREDNISONE [Suspect]
     Dosage: 60 MG
  3. PREDNISONE [Suspect]
     Dosage: 40 (UNITS UNSPECIFIED)
  4. PENTASA [Suspect]
     Dosage: 16 PILLS
  5. ASACOL [Suspect]
  6. IMURAN [Suspect]
  7. 6-MP [Suspect]
  8. CIPRO [Suspect]
  9. FLAGYL [Suspect]
  10. REMICADE [Suspect]
  11. MORPHINE [Suspect]
  12. ZOFRAN [Suspect]
  13. PENICILLIN [Suspect]
  14. ENTOCORT [Suspect]

REACTIONS (8)
  - Pancreatitis [Unknown]
  - Urticaria [Unknown]
  - Weight increased [Unknown]
  - Serum sickness [Unknown]
  - Osteoporosis [Unknown]
  - Osteoarthritis [Unknown]
  - Drug dependence [Unknown]
  - Drug ineffective [Recovered/Resolved]
